FAERS Safety Report 16897803 (Version 5)
Quarter: 2020Q1

REPORT INFORMATION
  Report Type: Spontaneous
  Country: US (occurrence: US)
  Receive Date: 20191009
  Receipt Date: 20200103
  Transmission Date: 20200409
  Serious: Yes (Other)
  Sender: FDA-Public Use
  Company Number: US-KARYOPHARM-2019KPT000626

PATIENT

DRUGS (7)
  1. OLANZAPINE. [Concomitant]
     Active Substance: OLANZAPINE
     Indication: PRODUCT USED FOR UNKNOWN INDICATION
  2. XPOVIO [Suspect]
     Active Substance: SELINEXOR
     Dosage: 80 MG, 2X/WEEK
     Route: 048
     Dates: start: 20190913
  3. ZOFRAN [Concomitant]
     Active Substance: ONDANSETRON HYDROCHLORIDE
     Indication: PROPHYLAXIS OF NAUSEA AND VOMITING
  4. XPOVIO [Suspect]
     Active Substance: SELINEXOR
     Indication: PLASMA CELL MYELOMA
     Dosage: 100 MG, WEEKLY
     Route: 048
     Dates: start: 20190930, end: 20191226
  5. SANCUSO [Concomitant]
     Active Substance: GRANISETRON
     Indication: PROPHYLAXIS OF NAUSEA AND VOMITING
  6. ALPRAZOLAM. [Concomitant]
     Active Substance: ALPRAZOLAM
     Indication: PRODUCT USED FOR UNKNOWN INDICATION
  7. SERTRALINE [Concomitant]
     Active Substance: SERTRALINE HYDROCHLORIDE
     Indication: PRODUCT USED FOR UNKNOWN INDICATION

REACTIONS (23)
  - Spinal fracture [Unknown]
  - Drug ineffective [Unknown]
  - Asthenia [Unknown]
  - Dehydration [Unknown]
  - Nausea [Recovering/Resolving]
  - Back pain [Not Recovered/Not Resolved]
  - Muscle spasms [Unknown]
  - Skin ulcer [Unknown]
  - Diarrhoea [Recovering/Resolving]
  - Balance disorder [Unknown]
  - Memory impairment [Unknown]
  - Flatulence [Unknown]
  - Insomnia [Unknown]
  - Decreased appetite [Unknown]
  - Anxiety [Unknown]
  - Agitation [Unknown]
  - Neuropathy peripheral [Unknown]
  - Muscle strain [Unknown]
  - Taste disorder [Recovering/Resolving]
  - Fatigue [Recovering/Resolving]
  - Overdose [Unknown]
  - Dysphonia [Unknown]
  - Weight decreased [Not Recovered/Not Resolved]
